FAERS Safety Report 9784193 (Version 1)
Quarter: 2013Q4

REPORT INFORMATION
  Report Type: Spontaneous
  Country: US (occurrence: US)
  Receive Date: 20131226
  Receipt Date: 20131226
  Transmission Date: 20140711
  Serious: No
  Sender: FDA-Public Use
  Company Number: US-PFIZER INC-2013365911

PATIENT
  Sex: Male

DRUGS (2)
  1. SILDENAFIL CITRATE [Suspect]
     Indication: ERECTILE DYSFUNCTION
     Dosage: 3 20MG (60 MG), UNK
  2. SILDENAFIL CITRATE [Suspect]
     Dosage: 5 20MG (100 MG), UNK

REACTIONS (1)
  - Drug ineffective for unapproved indication [Unknown]
